FAERS Safety Report 5722366-2 (Version None)
Quarter: 2008Q2

REPORT INFORMATION
  Report Type: 
  Country: None (occurrence: None)
  Receive Date: 20080429
  Receipt Date: 20070827
  Transmission Date: 20081010
  Serious: No
  Sender: FDA-Public Use
  Company Number: US-ASTRAZENECA-2007UW20379

PATIENT
  Sex: Female

DRUGS (5)
  1. NEXIUM [Suspect]
     Route: 048
     Dates: start: 20070821
  2. AMITRIPTYLINE HCL [Concomitant]
  3. CITALOPRAM HYDROBROMIDE [Concomitant]
  4. CELESTINE [Concomitant]
  5. LEVOTHYROXINE SODIUM [Concomitant]

REACTIONS (5)
  - BLOOD GLUCOSE DECREASED [None]
  - BLOOD GLUCOSE INCREASED [None]
  - DIZZINESS [None]
  - GAIT DISTURBANCE [None]
  - TREMOR [None]
